FAERS Safety Report 7298221-6 (Version None)
Quarter: 2011Q1

REPORT INFORMATION
  Report Type: 
  Country: None (occurrence: None)
  Receive Date: 20110217
  Receipt Date: 20101206
  Transmission Date: 20110831
  Serious: Yes (Other)
  Sender: FDA-Public Use
  Company Number: US-BAYER-201033060NA

PATIENT
  Sex: Female
  Weight: 106.58 kg

DRUGS (1)
  1. MIRENA [Suspect]
     Indication: CONTRACEPTION
     Dosage: FREQUENCY: CONTINUOUS. IN MAY-2010, MIRENA WAS PUSHED BACK UP BY HISTEROSCOPY
     Route: 015
     Dates: start: 20090210

REACTIONS (21)
  - CONSTIPATION [None]
  - BRONCHITIS [None]
  - PYREXIA [None]
  - FUNGAL INFECTION [None]
  - GENITAL DISCHARGE [None]
  - VAGINITIS BACTERIAL [None]
  - ENDOMETRITIS [None]
  - DYSFUNCTIONAL UTERINE BLEEDING [None]
  - BACK PAIN [None]
  - URINARY TRACT INFECTION [None]
  - ANOGENITAL DYSPLASIA [None]
  - PELVIC PAIN [None]
  - ADNEXA UTERI PAIN [None]
  - ABDOMINAL PAIN [None]
  - ABDOMINAL PAIN LOWER [None]
  - FATIGUE [None]
  - DEVICE DISLOCATION [None]
  - ANAL HAEMORRHAGE [None]
  - NAUSEA [None]
  - URINARY TRACT PAIN [None]
  - PRURITUS [None]
